FAERS Safety Report 5244983-9 (Version None)
Quarter: 2007Q1

REPORT INFORMATION
  Report Type: 
  Country: None (occurrence: None)
  Receive Date: 20070221
  Receipt Date: 20070221
  Transmission Date: 20070707
  Serious: Yes (Life-Threatening, Disabling, Other)
  Sender: FDA-Public Use
  Company Number: None

PATIENT
  Age: 58 Year
  Sex: Male
  Weight: 127.0072 kg

DRUGS (1)
  1. CADUET [Suspect]
     Indication: HYPERTENSION
     Dosage: 1 TABLET 1 X PER DATE PO
     Route: 048
     Dates: start: 20070206, end: 20070207

REACTIONS (4)
  - SCAR [None]
  - STEVENS-JOHNSON SYNDROME [None]
  - SWELLING [None]
  - WEIGHT INCREASED [None]
